FAERS Safety Report 24271071 (Version 1)
Quarter: 2024Q3

REPORT INFORMATION
  Report Type: Report from Study
  Country: US (occurrence: US)
  Receive Date: 20240831
  Receipt Date: 20240831
  Transmission Date: 20241017
  Serious: Yes (Other)
  Sender: BAXTER
  Company Number: US-BAXTER-2024BAX023578

PATIENT
  Age: 15 Year
  Sex: Male
  Weight: 46.4 kg

DRUGS (54)
  1. CYCLOPHOSPHAMIDE [Suspect]
     Active Substance: CYCLOPHOSPHAMIDE
     Indication: Chemotherapy
     Dosage: UNK, 2 CYCLES, THERAPY START DATES: FEB-2014 AND APR-2014
     Route: 065
  2. CYCLOPHOSPHAMIDE [Suspect]
     Active Substance: CYCLOPHOSPHAMIDE
     Dosage: UNK, THERAPY START DATE: MAR-2016 (FOR HAHA)
     Route: 065
  3. CYCLOPHOSPHAMIDE [Suspect]
     Active Substance: CYCLOPHOSPHAMIDE
     Dosage: UNK, 2 CYCLES, THERAPY START DATE: DEC-2019
     Route: 065
  4. CYCLOPHOSPHAMIDE [Suspect]
     Active Substance: CYCLOPHOSPHAMIDE
     Dosage: UNK, 2 CYCLES
     Route: 065
     Dates: start: 20221031, end: 20221202
  5. CYCLOPHOSPHAMIDE [Suspect]
     Active Substance: CYCLOPHOSPHAMIDE
     Dosage: UNK, THERAPY DATE: OCT-2022
     Route: 065
  6. IFOSFAMIDE [Suspect]
     Active Substance: IFOSFAMIDE
     Indication: Chemotherapy
     Dosage: UNK, 1 CYCLE, THERAPY DATE: APR-2014
     Route: 065
  7. IFOSFAMIDE [Suspect]
     Active Substance: IFOSFAMIDE
     Dosage: UNK, 1 CYCLE OF LOW DOSE, THERAPY DATE: DEC-2015
     Route: 065
  8. BUSULFAN [Suspect]
     Active Substance: BUSULFAN
     Indication: Transplant
     Dosage: UNK, BUMEL
     Route: 065
     Dates: start: 20120807
  9. MELPHALAN [Suspect]
     Active Substance: MELPHALAN
     Indication: Transplant
     Dosage: UNK, BUMEL
     Route: 065
     Dates: start: 20120807
  10. DINUTUXIMAB [Suspect]
     Active Substance: DINUTUXIMAB
     Indication: Immunochemotherapy
     Dosage: UNK, 5 CYCLES
     Route: 065
     Dates: start: 20120923
  11. DINUTUXIMAB [Suspect]
     Active Substance: DINUTUXIMAB
     Indication: Chemotherapy
     Dosage: UNK, 2 CYCLES, THERAPY START DATE: DEC-2019
     Route: 065
  12. DINUTUXIMAB [Suspect]
     Active Substance: DINUTUXIMAB
     Dosage: UNK, 4 CYCLES, THERAPY START DATE: FEB-2020
     Route: 065
  13. DINUTUXIMAB [Suspect]
     Active Substance: DINUTUXIMAB
     Dosage: UNK, 3 CYCLES
     Route: 065
     Dates: start: 20200727
  14. DINUTUXIMAB [Suspect]
     Active Substance: DINUTUXIMAB
     Dosage: UNK, 2 CYCLES, THERAPY START DATE: MAY-2021
     Route: 065
  15. DINUTUXIMAB [Suspect]
     Active Substance: DINUTUXIMAB
     Dosage: UNK, 4 CYCLES, THERAPY START DATE: JUL-2021 TO SEP-2021
     Route: 065
  16. DINUTUXIMAB [Suspect]
     Active Substance: DINUTUXIMAB
     Dosage: UNK, 6 CYCLES MONOTHERAPY, THERAPY START DATE: SEP-2021
     Route: 065
  17. DINUTUXIMAB [Suspect]
     Active Substance: DINUTUXIMAB
     Dosage: UNK, MONOTHERAPY
     Route: 065
     Dates: start: 20220330, end: 20221008
  18. ISOTRETINOIN [Suspect]
     Active Substance: ISOTRETINOIN
     Indication: Immunochemotherapy
     Dosage: UNK, 5 CYCLES
     Route: 065
     Dates: start: 20120923
  19. ISOTRETINOIN [Suspect]
     Active Substance: ISOTRETINOIN
     Dosage: UNK, 6 ADDITIONAL MONTHS OF THERAPY, THERAPY START DATE: JAN-2013
     Route: 065
     Dates: end: 20130729
  20. ALDESLEUKIN [Suspect]
     Active Substance: ALDESLEUKIN
     Indication: Immunochemotherapy
     Dosage: UNK, 5 CYCLES
     Route: 065
     Dates: start: 20130923
  21. TOPOTECAN [Suspect]
     Active Substance: TOPOTECAN HYDROCHLORIDE
     Indication: Chemotherapy
     Dosage: UNK, 2 CYCLES, THERAPY START DATES: FEB-2014 AND APR-2014
     Route: 065
  22. TOPOTECAN [Suspect]
     Active Substance: TOPOTECAN HYDROCHLORIDE
     Dosage: UNK, 2 CYCLES, THERAPY START DATE: DEC-2019
     Route: 065
  23. TOPOTECAN [Suspect]
     Active Substance: TOPOTECAN HYDROCHLORIDE
     Dosage: UNK, 2 CYCLES
     Route: 065
     Dates: start: 20221031, end: 20221202
  24. TOPOTECAN [Suspect]
     Active Substance: TOPOTECAN HYDROCHLORIDE
     Dosage: UNK, THERAPY DATE: OCT-2022
     Route: 065
  25. GRANULOCYTE-MACROPHAGE COLONY-STIMULATING FACTOR [Suspect]
     Active Substance: GRANULOCYTE-MACROPHAGE COLONY-STIMULATING FACTOR
     Indication: Immunochemotherapy
     Dosage: UNK
     Route: 065
     Dates: start: 20130923
  26. GRANULOCYTE-MACROPHAGE COLONY-STIMULATING FACTOR [Suspect]
     Active Substance: GRANULOCYTE-MACROPHAGE COLONY-STIMULATING FACTOR
     Dosage: UNK, THERAPY START DATE: DEC-2019
     Route: 065
  27. GRANULOCYTE-MACROPHAGE COLONY-STIMULATING FACTOR [Suspect]
     Active Substance: GRANULOCYTE-MACROPHAGE COLONY-STIMULATING FACTOR
     Dosage: UNK, THERAPY START DATE: FEB-2020
     Route: 065
  28. GRANULOCYTE-MACROPHAGE COLONY-STIMULATING FACTOR [Suspect]
     Active Substance: GRANULOCYTE-MACROPHAGE COLONY-STIMULATING FACTOR
     Dosage: UNK, 4 CYCLES, THERAPY START DATE: JUL-2021 TO SEP-2021
     Route: 065
  29. GRANULOCYTE-MACROPHAGE COLONY-STIMULATING FACTOR [Suspect]
     Active Substance: GRANULOCYTE-MACROPHAGE COLONY-STIMULATING FACTOR
     Dosage: UNK, 8 CYCLES
     Route: 065
     Dates: start: 20220330, end: 20221008
  30. GRANULOCYTE-MACROPHAGE COLONY-STIMULATING FACTOR [Suspect]
     Active Substance: GRANULOCYTE-MACROPHAGE COLONY-STIMULATING FACTOR
     Dosage: UNK, 8 CYCLES, THERAPY DATE: JAN-2023 (LAST CYCLE STARTED ON 02-AUG-2023)
     Route: 065
  31. VINCRISTINE [Suspect]
     Active Substance: VINCRISTINE
     Indication: Chemotherapy
     Dosage: UNK, 2 CYCLES, THERAPY DATES: FEB-2014 AND APR-2014
     Route: 065
  32. ETOPOSIDE [Suspect]
     Active Substance: ETOPOSIDE
     Indication: Chemotherapy
     Dosage: UNK, 1 CYCLE, THERAPY DATE: APR-2014
     Route: 065
  33. ETOPOSIDE [Suspect]
     Active Substance: ETOPOSIDE
     Dosage: UNK, 1 CYCLE OF LOW DOSE, THERAPY DATE: DEC-2015
     Route: 065
  34. CARBOPLATIN [Suspect]
     Active Substance: CARBOPLATIN
     Indication: Chemotherapy
     Dosage: UNK, 1 CYCLE, THERAPY DATE: APR-2014
     Route: 065
  35. CARBOPLATIN [Suspect]
     Active Substance: CARBOPLATIN
     Dosage: UNK, 1 CYCLE OF LOW DOSE, THERAPY DATE: DEC-2015
     Route: 065
  36. IRINOTECAN [Suspect]
     Active Substance: IRINOTECAN
     Indication: Chemotherapy
     Dosage: UNK, THERAPY START DATE: NOV-2014
     Route: 065
  37. IRINOTECAN [Suspect]
     Active Substance: IRINOTECAN
     Indication: Immunochemotherapy
     Dosage: UNK, THERAPY START DATE: OCT-2015
     Route: 065
  38. IRINOTECAN [Suspect]
     Active Substance: IRINOTECAN
     Dosage: UNK, 2 CYCLES, THERAPY START DATE: APR-2016
     Route: 065
  39. IRINOTECAN [Suspect]
     Active Substance: IRINOTECAN
     Dosage: UNK, 1 CYCLE, THERAPY START DATE: AUG-2016
     Route: 065
  40. IRINOTECAN [Suspect]
     Active Substance: IRINOTECAN
     Dosage: UNK, 2 CYCLES, THERAPY START DATE: DEC-2019
     Route: 065
  41. IRINOTECAN [Suspect]
     Active Substance: IRINOTECAN
     Dosage: UNK, 4 CYCLES, THERAPY START DATE: FEB-2020
     Route: 065
  42. IRINOTECAN [Suspect]
     Active Substance: IRINOTECAN
     Dosage: UNK, 2 CYCLES, THERAPY DATE: MAY-2021
     Route: 065
  43. IRINOTECAN [Suspect]
     Active Substance: IRINOTECAN
     Dosage: UNK, 4 CYCLES, THERAPY DATE: JUL-2021 TO SEP-2021
     Route: 065
  44. IRINOTECAN [Suspect]
     Active Substance: IRINOTECAN
     Dosage: UNK, 8 CYCLES, THERAPY DATE: JAN-2023 (LAST CYCLE STARTED ON 02-AUG-2023)
     Route: 065
  45. TEMOZOLOMIDE [Suspect]
     Active Substance: TEMOZOLOMIDE
     Indication: Chemotherapy
     Dosage: UNK, THERAPY START DATE: NOV-2014
     Route: 065
  46. TEMOZOLOMIDE [Suspect]
     Active Substance: TEMOZOLOMIDE
     Dosage: UNK, 2 CYCLES, THERAPY START DATE: DEC-2019
     Route: 065
  47. TEMOZOLOMIDE [Suspect]
     Active Substance: TEMOZOLOMIDE
     Dosage: UNK, 4 CYCLES, THERAPY START DATE: FEB-2020
     Route: 065
  48. TEMOZOLOMIDE [Suspect]
     Active Substance: TEMOZOLOMIDE
     Dosage: UNK, 2 CYCLES, THERAPY START DATE: MAY-2021
     Route: 065
  49. TEMOZOLOMIDE [Suspect]
     Active Substance: TEMOZOLOMIDE
     Dosage: UNK, 4 CYCLES, THERAPY START DATE: JUL-2021 TO SEP-2021
     Route: 065
  50. TEMOZOLOMIDE [Suspect]
     Active Substance: TEMOZOLOMIDE
     Dosage: UNK, 8 CYCLES, THERAPY DATE: JAN-2023 (LAST CYCLE STARTED ON 02-AUG-2023)
     Route: 065
  51. RITUXIMAB [Suspect]
     Active Substance: RITUXIMAB
     Indication: Chemotherapy
     Dosage: UNK, THERAPY START DATE: MAR-2016 (FOR HAHA)
     Route: 065
  52. NAXITAMAB [Suspect]
     Active Substance: NAXITAMAB
     Indication: Immunochemotherapy
     Dosage: UNK, 8 CYCLES, THERAPY DATE: JAN-2023 (LAST CYCLE STARTED ON 02-AUG-2023)
     Route: 065
  53. VORINOSTAT [Suspect]
     Active Substance: VORINOSTAT
     Indication: Chemotherapy
     Dosage: UNK, ON OPTIMUM TRIAL CYCLE 1
     Route: 065
     Dates: start: 20230920
  54. VORINOSTAT [Suspect]
     Active Substance: VORINOSTAT
     Dosage: UNK, ON OPTIMUM CYCLE 2
     Route: 048
     Dates: start: 20231115, end: 20231128

REACTIONS (2)
  - Hydronephrosis [Recovered/Resolved]
  - Neuroblastoma recurrent [Unknown]

NARRATIVE: CASE EVENT DATE: 20221031
